FAERS Safety Report 8843046 (Version 2)
Quarter: 2012Q4

REPORT INFORMATION
  Report Type: 
  Country: JP (occurrence: JP)
  Receive Date: 20121016
  Receipt Date: 20121026
  Transmission Date: 20130627
  Serious: Yes (Hospitalization)
  Sender: FDA-Public Use
  Company Number: JP-GLAXOSMITHKLINE-B0837304A

PATIENT
  Age: 88 Year
  Sex: Female
  Weight: 40 kg

DRUGS (3)
  1. VALTREX [Suspect]
     Indication: HERPES ZOSTER
     Dosage: 1000MG Three times per day
     Route: 048
     Dates: start: 20110621, end: 20110623
  2. BLOPRESS [Concomitant]
     Indication: HYPERTENSION
     Dosage: 8MG Per day
     Route: 048
  3. MAGLAX [Concomitant]
     Indication: CONSTIPATION
     Route: 048

REACTIONS (8)
  - Renal failure acute [Recovered/Resolved]
  - Altered state of consciousness [Recovered/Resolved]
  - Urine output decreased [Recovering/Resolving]
  - Somnolence [Unknown]
  - Renal impairment [Recovering/Resolving]
  - Encephalopathy [Unknown]
  - Blood creatinine increased [Unknown]
  - Blood urea increased [Unknown]
